FAERS Safety Report 10710886 (Version 5)
Quarter: 2016Q4

REPORT INFORMATION
  Report Type: Spontaneous
  Country: US (occurrence: US)
  Receive Date: 20150114
  Receipt Date: 20161013
  Transmission Date: 20170206
  Serious: Yes (Disabling, Other)
  Sender: FDA-Public Use
  Company Number: US-009507513-1204USA03760

PATIENT
  Sex: Male
  Weight: 80.73 kg

DRUGS (6)
  1. ZOLOFT [Suspect]
     Active Substance: SERTRALINE HYDROCHLORIDE
  2. KLONOPIN [Suspect]
     Active Substance: CLONAZEPAM
  3. PROPECIA [Suspect]
     Active Substance: FINASTERIDE
     Indication: ANDROGENETIC ALOPECIA
     Dosage: 1 MG, UNKNOWN
     Route: 048
     Dates: start: 20040625
  4. LORAZEPAM. [Suspect]
     Active Substance: LORAZEPAM
  5. PROSCAR [Suspect]
     Active Substance: FINASTERIDE
     Indication: ANDROGENETIC ALOPECIA
     Dosage: UNK, UNKNOWN
     Route: 048
  6. FINASTERIDE. [Suspect]
     Active Substance: FINASTERIDE
     Indication: ANDROGENETIC ALOPECIA
     Dosage: UNK, UNKNOWN
     Route: 048
     Dates: start: 200409, end: 2011

REACTIONS (28)
  - Libido decreased [Unknown]
  - Cutaneous lupus erythematosus [Recovering/Resolving]
  - Alopecia areata [Recovering/Resolving]
  - Panic attack [Unknown]
  - Fatigue [Unknown]
  - Incisional drainage [Unknown]
  - Erectile dysfunction [Unknown]
  - Ejaculation failure [Unknown]
  - Sinus operation [Unknown]
  - Stress at work [Unknown]
  - Sedation [Unknown]
  - Scrotal disorder [Unknown]
  - Cognitive disorder [Unknown]
  - Depression [Not Recovered/Not Resolved]
  - Sexual dysfunction [Unknown]
  - Memory impairment [Unknown]
  - Onychomycosis [Unknown]
  - Urine ketone body present [Not Recovered/Not Resolved]
  - Anxiety [Not Recovered/Not Resolved]
  - Disturbance in attention [Unknown]
  - Wrong technique in product usage process [Unknown]
  - Drug hypersensitivity [Unknown]
  - Ejaculation disorder [Unknown]
  - Palpitations [Unknown]
  - Drug administration error [Unknown]
  - Anxiety disorder [Unknown]
  - Wrong technique in product usage process [Unknown]
  - Nasal congestion [Unknown]

NARRATIVE: CASE EVENT DATE: 200409
